FAERS Safety Report 10404430 (Version 1)
Quarter: 2014Q1

REPORT INFORMATION
  Report Type: Spontaneous
  Country: US (occurrence: None)
  Receive Date: 20140214
  Receipt Date: 20140214
  Transmission Date: 20141002
  Serious: No
  Sender: FDA-Public Use
  Company Number: A-NJ2013-92236

PATIENT
  Age: 45 Year
  Sex: Female

DRUGS (1)
  1. OPSUMIT (MACITENTAN) [Suspect]
     Indication: PRODUCT USED FOR UNKNOWN INDICATION
     Dosage: 1
     Route: 048
     Dates: start: 20131120

REACTIONS (2)
  - Swelling face [None]
  - Local swelling [None]
